FAERS Safety Report 6998986-4 (Version None)
Quarter: 2010Q3

REPORT INFORMATION
  Report Type: 
  Country: None (occurrence: None)
  Receive Date: 20100920
  Receipt Date: 20100618
  Transmission Date: 20110219
  Serious: No
  Sender: FDA-Public Use
  Company Number: US-ASTRAZENECA-2010SE28654

PATIENT
  Age: 58 Year
  Sex: Female
  Weight: 73.9 kg

DRUGS (5)
  1. SEROQUEL [Suspect]
     Indication: MENTAL DISORDER
     Route: 048
     Dates: start: 20050101
  2. DIOVAN [Concomitant]
  3. NORVASC [Concomitant]
  4. PRILOSEC [Concomitant]
  5. CLARITIN [Concomitant]

REACTIONS (2)
  - FALL [None]
  - SOCIAL AVOIDANT BEHAVIOUR [None]
